FAERS Safety Report 15566208 (Version 1)
Quarter: 2018Q4

REPORT INFORMATION
  Report Type: Spontaneous
  Country: US (occurrence: US)
  Receive Date: 20181030
  Receipt Date: 20181030
  Transmission Date: 20190205
  Serious: Yes (Hospitalization)
  Sender: FDA-Public Use
  Company Number: US-NEXGEN PHARMA, INC.-2058213

PATIENT
  Age: 26 Year
  Sex: Male

DRUGS (1)
  1. CHENODIOL TABLETS [Suspect]
     Active Substance: CHENODIOL
     Route: 048
     Dates: start: 20141219

REACTIONS (1)
  - Pneumonia [Recovered/Resolved]
